FAERS Safety Report 21826752 (Version 1)
Quarter: 2023Q1

REPORT INFORMATION
  Report Type: Spontaneous
  Country: NO (occurrence: NO)
  Receive Date: 20230106
  Receipt Date: 20230106
  Transmission Date: 20230417
  Serious: Yes (Other)
  Sender: FDA-Public Use
  Company Number: NO-PFIZER INC-PV202300001041

PATIENT
  Age: 52 Year
  Sex: Female

DRUGS (1)
  1. CIBINQO [Suspect]
     Active Substance: ABROCITINIB
     Route: 048

REACTIONS (11)
  - Hypertrophic cardiomyopathy [Unknown]
  - Blood pressure increased [Unknown]
  - Mass [Unknown]
  - Myalgia [Unknown]
  - Muscular weakness [Unknown]
  - Axillary mass [Unknown]
  - Muscle atrophy [Unknown]
  - Nausea [Unknown]
  - Diarrhoea [Unknown]
  - Dizziness [Unknown]
  - Decreased appetite [Unknown]
